FAERS Safety Report 23269272 (Version 1)
Quarter: 2023Q4

REPORT INFORMATION
  Report Type: Report from Study
  Country: US (occurrence: US)
  Receive Date: 20231207
  Receipt Date: 20231207
  Transmission Date: 20240110
  Serious: Yes (Hospitalization)
  Sender: FDA-Public Use
  Company Number: US-UCBSA-2023038627

PATIENT
  Sex: Female

DRUGS (1)
  1. CERTOLIZUMAB PEGOL [Suspect]
     Active Substance: CERTOLIZUMAB PEGOL
     Indication: Rheumatoid arthritis
     Dosage: 400 MILLIGRAM, EV 4 WEEKS
     Dates: start: 20230531, end: 20231116

REACTIONS (11)
  - Fall [Unknown]
  - Injury [Unknown]
  - Infection [Unknown]
  - Thinking abnormal [Unknown]
  - Memory impairment [Unknown]
  - Limb discomfort [Unknown]
  - Blood cholesterol increased [Unknown]
  - Hypertension [Unknown]
  - Dysuria [Unknown]
  - Pollakiuria [Unknown]
  - Inappropriate schedule of product administration [Unknown]

NARRATIVE: CASE EVENT DATE: 20230101
